FAERS Safety Report 8049352-4 (Version None)
Quarter: 2012Q1

REPORT INFORMATION
  Report Type: 
  Country: None (occurrence: None)
  Receive Date: 20120117
  Receipt Date: 20120111
  Transmission Date: 20120608
  Serious: Yes (Other)
  Sender: FDA-Public Use
  Company Number: TW-JNJFOC-20120103461

PATIENT
  Sex: Male

DRUGS (5)
  1. CONCERTA [Suspect]
     Indication: SOMNOLENCE
     Dosage: DOSE PRESCIBED FOR ONE YEAR
     Route: 048
  2. CONCERTA [Suspect]
     Dosage: 108 MG
     Route: 048
     Dates: start: 20111201
  3. CONCERTA [Suspect]
     Dosage: 108 MG
     Route: 048
     Dates: start: 20111201
  4. UNSPECIFIED ANTIDEPRESSANTS [Suspect]
     Indication: PRODUCT USED FOR UNKNOWN INDICATION
     Route: 065
  5. CONCERTA [Suspect]
     Indication: ATTENTION DEFICIT/HYPERACTIVITY DISORDER
     Dosage: DOSE PRESCIBED FOR ONE YEAR
     Route: 048

REACTIONS (4)
  - OVERDOSE [None]
  - SUICIDAL IDEATION [None]
  - ATTENTION DEFICIT/HYPERACTIVITY DISORDER [None]
  - SOMNOLENCE [None]
